FAERS Safety Report 7291988-2 (Version None)
Quarter: 2011Q1

REPORT INFORMATION
  Report Type: 
  Country: None (occurrence: None)
  Receive Date: 20110214
  Receipt Date: 20110201
  Transmission Date: 20110831
  Serious: Yes (Other)
  Sender: FDA-Public Use
  Company Number: GB-MYLANLABS-2011S1002161

PATIENT
  Age: 29 Year
  Sex: Female
  Weight: 73 kg

DRUGS (4)
  1. FEXOFENADINE [Suspect]
     Indication: PRODUCT USED FOR UNKNOWN INDICATION
     Route: 048
     Dates: start: 20110110, end: 20110111
  2. ASPIRIN [Concomitant]
     Indication: OROPHARYNGEAL PAIN
     Route: 048
  3. BENZYDAMINE [Concomitant]
     Indication: OROPHARYNGEAL PAIN
  4. E 45 [Concomitant]
     Indication: URTICARIA
     Route: 061

REACTIONS (1)
  - HYPERTENSION [None]
